FAERS Safety Report 21313805 (Version 1)
Quarter: 2022Q3

REPORT INFORMATION
  Report Type: Spontaneous
  Country: JP (occurrence: JP)
  Receive Date: 20220909
  Receipt Date: 20220909
  Transmission Date: 20221027
  Serious: Yes (Hospitalization)
  Sender: FDA-Public Use
  Company Number: JP-MYLANLABS-2022M1092082

PATIENT
  Age: 1 Year
  Sex: Female

DRUGS (2)
  1. ERYTHROMYCIN [Suspect]
     Active Substance: ERYTHROMYCIN
     Indication: Asthma
     Dosage: UNK
     Route: 048
  2. METHYLPREDNISOLONE [Suspect]
     Active Substance: METHYLPREDNISOLONE
     Indication: Asthma
     Dosage: 1 MILLIGRAM/KILOGRAM, TID
     Route: 042

REACTIONS (1)
  - Drug ineffective [Unknown]
